FAERS Safety Report 6779759-4 (Version None)
Quarter: 2010Q2

REPORT INFORMATION
  Report Type: 
  Country: None (occurrence: None)
  Receive Date: 20100618
  Receipt Date: 20100610
  Transmission Date: 20101027
  Serious: Yes (Life-Threatening, Hospitalization, Disabling)
  Sender: FDA-Public Use
  Company Number: JP-JNJFOC-20100510218

PATIENT
  Sex: Female

DRUGS (13)
  1. CRAVIT [Suspect]
     Indication: DYSPNOEA
     Route: 048
  2. CRAVIT [Suspect]
     Indication: PRODUCTIVE COUGH
     Route: 048
  3. CRAVIT [Suspect]
     Indication: COUGH
     Route: 048
  4. CRAVIT [Suspect]
     Indication: PNEUMONIA
     Route: 048
  5. AVELOX [Suspect]
     Indication: PNEUMONIA
     Route: 048
  6. AVELOX [Suspect]
     Indication: PYREXIA
     Route: 048
  7. KLARICID [Suspect]
     Indication: DRUG USE FOR UNKNOWN INDICATION
     Route: 065
  8. MUCOSOLVAN [Concomitant]
     Indication: PRODUCTIVE COUGH
     Route: 048
  9. ZITHROMAX [Concomitant]
     Indication: PNEUMONIA
     Route: 048
  10. CALONAL [Concomitant]
     Indication: PYREXIA
     Dosage: AT ONSET OF FEVER- 400MG
     Route: 048
  11. BROTIZOLAM [Concomitant]
     Indication: INSOMNIA
     Route: 048
  12. RIMACTANE [Concomitant]
     Indication: PNEUMONIA
     Route: 065
  13. AMPICILLIN SODIUM/SULBACTAM SODIUM [Concomitant]
     Indication: PNEUMONIA
     Route: 041

REACTIONS (2)
  - INTERSTITIAL LUNG DISEASE [None]
  - NAUSEA [None]
